FAERS Safety Report 7624946-6 (Version None)
Quarter: 2011Q3

REPORT INFORMATION
  Report Type: 
  Country: None (occurrence: None)
  Receive Date: 20110720
  Receipt Date: 20081104
  Transmission Date: 20111222
  Serious: Yes (Hospitalization)
  Sender: FDA-Public Use
  Company Number: DE-GENENTECH-321673

PATIENT
  Age: 75 Year
  Sex: Female

DRUGS (1)
  1. LUCENTIS [Suspect]
     Indication: AGE-RELATED MACULAR DEGENERATION
     Dosage: UNK UNK, UNKNOWN
     Route: 031
     Dates: start: 20080925

REACTIONS (1)
  - DEAFNESS [None]
